FAERS Safety Report 8888808 (Version 2)
Quarter: 2013Q2

REPORT INFORMATION
  Report Type: Spontaneous
  Country: US (occurrence: US)
  Receive Date: 20121106
  Receipt Date: 20130610
  Transmission Date: 20140414
  Serious: No
  Sender: FDA-Public Use
  Company Number: US-009507513-1211USA000244

PATIENT
  Age: 23 Year
  Sex: Female

DRUGS (1)
  1. IMPLANON [Suspect]
     Indication: CONTRACEPTION
     Dosage: 68 MG/3 YEAR IMPLANT
     Route: 059
     Dates: start: 20120315, end: 20120321

REACTIONS (3)
  - Complication of device insertion [Recovered/Resolved]
  - Implant site oedema [Unknown]
  - Implant site erythema [Unknown]
